FAERS Safety Report 8769814 (Version 1)
Quarter: 2012Q4

REPORT INFORMATION
  Report Type: Report from Study
  Country: DE (occurrence: DE)
  Receive Date: 20120905
  Receipt Date: 20120905
  Transmission Date: 20130627
  Serious: Yes (Other)
  Sender: FDA-Public Use
  Company Number: DE-BRISTOL-MYERS SQUIBB COMPANY-16906158

PATIENT
  Age: 37 Year
  Sex: Female
  Weight: 59 kg

DRUGS (13)
  1. PACLITAXEL [Suspect]
     Indication: BREAST CANCER METASTATIC
     Dosage: last dose:19Oct11(130mg,1 in1 wk).Paclitaxel inf,Dse2: 105mg,23Jn11-11Jl11,17Jul11-19Ot11(95 Dys).
     Route: 042
     Dates: start: 20110623, end: 20111019
  2. BEVACIZUMAB [Suspect]
     Indication: BREAST CANCER METASTATIC
     Dosage: INf,Last dose 05Oct11(855mg,1 in 3wk).
     Route: 042
     Dates: start: 20110623, end: 20111005
  3. PAMIDRONATE [Concomitant]
     Dosage: 1 in 1 M
     Dates: start: 20110901
  4. LASIX [Concomitant]
     Dates: start: 20111004
  5. OMEPRAZOLE [Concomitant]
     Dates: start: 20111004
  6. MAALOXAN [Concomitant]
     Dates: start: 20110707
  7. XYLOCAINE [Concomitant]
     Dates: start: 20110707
  8. DEXPANTHENOL [Concomitant]
     Dates: start: 20110707
  9. PAMIDRONATE [Concomitant]
     Dosage: 1 in 1 M
     Dates: start: 20110901
  10. IBUPROFEN [Concomitant]
     Dates: start: 20110617
  11. RAMIPRIL [Concomitant]
     Dates: start: 20110617
  12. GABAPENTIN [Concomitant]
     Dates: start: 20111012
  13. EFFORTIL [Concomitant]
     Dates: start: 20111019

REACTIONS (2)
  - Nail disorder [Recovered/Resolved]
  - Palmar-plantar erythrodysaesthesia syndrome [Unknown]
